FAERS Safety Report 5773850-7 (Version None)
Quarter: 2008Q2

REPORT INFORMATION
  Report Type: 
  Country: None (occurrence: None)
  Receive Date: 20080616
  Receipt Date: 20080612
  Transmission Date: 20081010
  Serious: Yes (Hospitalization)
  Sender: FDA-Public Use
  Company Number: A0613738A

PATIENT
  Sex: Female

DRUGS (1)
  1. LAMICTAL [Suspect]
     Indication: BIPOLAR DISORDER
     Route: 048

REACTIONS (6)
  - ADVERSE EVENT [None]
  - CONSTIPATION [None]
  - DYSPNOEA [None]
  - GASTROINTESTINAL DISORDER [None]
  - PAIN [None]
  - PERFORMANCE STATUS DECREASED [None]
